FAERS Safety Report 4486553-6 (Version None)
Quarter: 2004Q4

REPORT INFORMATION
  Report Type: 
  Country: None (occurrence: None)
  Receive Date: 20041026
  Receipt Date: 20041026
  Transmission Date: 20050328
  Serious: Yes (Hospitalization)
  Sender: FDA-Public Use
  Company Number: None

PATIENT
  Sex: Male
  Weight: 80.7403 kg

DRUGS (12)
  1. CISPLATIN [Suspect]
     Indication: OESOPHAGEAL CARCINOMA
     Dosage: 30MG DAYS 1-5 IV
     Route: 042
     Dates: start: 20040913
  2. CISPLATIN [Suspect]
     Indication: OESOPHAGEAL CARCINOMA
     Dosage: 30MG DAYS 1-5 IV
     Route: 042
     Dates: start: 20040914
  3. CISPLATIN [Suspect]
     Indication: OESOPHAGEAL CARCINOMA
     Dosage: 30MG DAYS 1-5 IV
     Route: 042
     Dates: start: 20040915
  4. CISPLATIN [Suspect]
     Indication: OESOPHAGEAL CARCINOMA
     Dosage: 30MG DAYS 1-5 IV
     Route: 042
     Dates: start: 20040916
  5. CISPLATIN [Suspect]
     Indication: OESOPHAGEAL CARCINOMA
     Dosage: 30MG DAYS 1-5 IV
     Route: 042
     Dates: start: 20040917
  6. TAXOL [Suspect]
     Indication: OESOPHAGEAL CARCINOMA
     Dosage: 396 MG DAY 1 IV
     Route: 042
     Dates: start: 20040913
  7. FLUOROURACIL [Suspect]
     Indication: OESOPHAGEAL CARCINOMA
     Dosage: 1386 CONT INF DAYS 1-6 IV
     Route: 042
     Dates: start: 20040913, end: 20040918
  8. DECADRON [Concomitant]
  9. CIMETIDINE [Concomitant]
  10. BENADRYL [Concomitant]
  11. ZOPHRAN [Concomitant]
  12. DECADRON [Concomitant]

REACTIONS (8)
  - ANOREXIA [None]
  - ASTHENIA [None]
  - BLOOD PRESSURE DECREASED [None]
  - DEHYDRATION [None]
  - DIZZINESS [None]
  - HYPERTENSION [None]
  - LOSS OF CONSCIOUSNESS [None]
  - SYNCOPE [None]
